FAERS Safety Report 18574820 (Version 2)
Quarter: 2021Q2

REPORT INFORMATION
  Report Type: Spontaneous
  Country: US (occurrence: US)
  Receive Date: 20201203
  Receipt Date: 20210611
  Transmission Date: 20210717
  Serious: Yes (Other)
  Sender: FDA-Public Use
  Company Number: US-PFIZER INC-2020457684

PATIENT
  Age: 57 Year
  Sex: Male

DRUGS (2)
  1. ACETAMINOPHEN W/OXYCODONE [Concomitant]
     Active Substance: ACETAMINOPHEN\OXYCODONE HYDROCHLORIDE
     Indication: PAIN
     Dosage: UNK, AS NEEDED (EVERY 4 HOURS AS NEEDED)
     Route: 048
  2. GABAPENTIN. [Suspect]
     Active Substance: GABAPENTIN
     Indication: PAIN
     Dosage: 600 MG, 4X/DAY
     Route: 048

REACTIONS (2)
  - Somnolence [Recovered/Resolved]
  - Sexual dysfunction [Recovered/Resolved]
